FAERS Safety Report 19959185 (Version 1)
Quarter: 2021Q4

REPORT INFORMATION
  Report Type: Spontaneous
  Country: US (occurrence: US)
  Receive Date: 20211012
  Receipt Date: 20211012
  Transmission Date: 20220303
  Serious: Yes (Other)
  Sender: FDA-Public Use
  Company Number: None

PATIENT
  Age: 34 Year
  Sex: Female

DRUGS (4)
  1. LEUPROLIDE [Suspect]
     Active Substance: LEUPROLIDE
     Indication: Infertility female
     Dosage: ?          OTHER DOSE:1 MG/0.2ML;OTHER FREQUENCY:SEE B.6(PAGE2);OTHER ROUTE:INJECTION  INJECT 10 UNI
     Dates: start: 20210604
  2. ESTRADIOL [Concomitant]
     Active Substance: ESTRADIOL
  3. PRENATAL TAB [Concomitant]
  4. PROGESTERONE [Suspect]
     Active Substance: PROGESTERONE

REACTIONS (1)
  - Abortion spontaneous [None]

NARRATIVE: CASE EVENT DATE: 20210701
